FAERS Safety Report 10348298 (Version 1)
Quarter: 2014Q3

REPORT INFORMATION
  Report Type: Spontaneous
  Country: ES (occurrence: ES)
  Receive Date: 20140729
  Receipt Date: 20140729
  Transmission Date: 20150326
  Serious: Yes (Other)
  Sender: FDA-Public Use
  Company Number: ES-ROXANE LABORATORIES, INC.-2014-RO-01125RO

PATIENT
  Age: 36 Year
  Sex: Female
  Weight: 35 kg

DRUGS (1)
  1. MORPHINE [Suspect]
     Active Substance: MORPHINE
     Indication: PAIN
     Route: 048

REACTIONS (4)
  - Constipation [Recovered/Resolved]
  - Hyperaesthesia [Recovered/Resolved]
  - Somnolence [Unknown]
  - Abdominal distension [Recovered/Resolved]
